FAERS Safety Report 4832894-X (Version None)
Quarter: 2005Q4

REPORT INFORMATION
  Report Type: 
  Country: None (occurrence: None)
  Receive Date: 20051121
  Receipt Date: 20051114
  Transmission Date: 20060501
  Serious: Yes (Hospitalization)
  Sender: FDA-Public Use
  Company Number: IT-GLAXOSMITHKLINE-B0400859A

PATIENT
  Age: 42 Year
  Sex: Female

DRUGS (1)
  1. AUGMENTIN [Suspect]
     Indication: DENTAL CARIES
     Route: 048
     Dates: start: 20050527, end: 20050527

REACTIONS (3)
  - ANAEMIA [None]
  - PYREXIA [None]
  - RASH GENERALISED [None]
